FAERS Safety Report 10018890 (Version 3)
Quarter: 2014Q2

REPORT INFORMATION
  Report Type: Spontaneous
  Country: JP (occurrence: JP)
  Receive Date: 20140318
  Receipt Date: 20140402
  Transmission Date: 20141212
  Serious: Yes (Other)
  Sender: FDA-Public Use
  Company Number: JP-PFIZER INC-2014072298

PATIENT
  Age: 59 Year
  Sex: Female

DRUGS (1)
  1. PROVERA [Suspect]
     Dosage: UNK
     Route: 048

REACTIONS (2)
  - Cervix carcinoma [Unknown]
  - Postmenopausal haemorrhage [Unknown]
